FAERS Safety Report 10757894 (Version 1)
Quarter: 2015Q1

REPORT INFORMATION
  Report Type: Spontaneous
  Country: US (occurrence: None)
  Receive Date: 20150202
  Receipt Date: 20150202
  Transmission Date: 20150721
  Serious: Yes (Disabling, Other)
  Sender: FDA-Public Use
  Company Number: None

PATIENT
  Age: 43 Year
  Sex: Female
  Weight: 71.67 kg

DRUGS (18)
  1. CALCIUM/D [Concomitant]
  2. LORAZEPAM. [Suspect]
     Active Substance: LORAZEPAM
  3. SUMATRIPTAN. [Concomitant]
     Active Substance: SUMATRIPTAN
  4. ABILIFY [Concomitant]
     Active Substance: ARIPIPRAZOLE
  5. LORAZEPAM. [Concomitant]
     Active Substance: LORAZEPAM
  6. LYRICA [Concomitant]
     Active Substance: PREGABALIN
  7. VITAMIN D [Concomitant]
     Active Substance: CHOLECALCIFEROL
  8. HYOSCYAMINE [Concomitant]
     Active Substance: HYOSCYAMINE
  9. MODAFINIL. [Concomitant]
     Active Substance: MODAFINIL
  10. METHADONE [Suspect]
     Active Substance: METHADONE HYDROCHLORIDE
  11. BISACODYL. [Concomitant]
     Active Substance: BISACODYL
  12. ALBUTEROL. [Concomitant]
     Active Substance: ALBUTEROL
  13. LORATADINE. [Concomitant]
     Active Substance: LORATADINE
  14. ESCITALOPRAM [Concomitant]
     Active Substance: ESCITALOPRAM OXALATE
  15. FLUTICASONE [Concomitant]
     Active Substance: FLUTICASONE\FLUTICASONE PROPIONATE
  16. VENTOLIN [Concomitant]
     Active Substance: ALBUTEROL SULFATE
  17. SENNA LAXATIVE [Concomitant]
     Active Substance: SENNOSIDES A AND B
  18. CLINDAMY/BEN [Concomitant]

REACTIONS (5)
  - Pain in extremity [None]
  - Exostosis [None]
  - Neck pain [None]
  - Condition aggravated [None]
  - Intervertebral disc degeneration [None]

NARRATIVE: CASE EVENT DATE: 201409
